FAERS Safety Report 16610625 (Version 2)
Quarter: 2019Q3

REPORT INFORMATION
  Report Type: Spontaneous
  Country: PT (occurrence: PT)
  Receive Date: 20190722
  Receipt Date: 20190726
  Transmission Date: 20191004
  Serious: Yes (Hospitalization)
  Sender: FDA-Public Use
  Company Number: PHHY2019PT164685

PATIENT
  Age: 70 Year
  Sex: Female

DRUGS (2)
  1. COSENTYX [Suspect]
     Active Substance: SECUKINUMAB
     Indication: PSORIATIC ARTHROPATHY
     Dosage: UNK
     Route: 065
     Dates: start: 20180525, end: 20190528
  2. LEPICORTINOLO [Concomitant]
     Active Substance: PREDNISOLONE
     Indication: PRODUCT USED FOR UNKNOWN INDICATION
     Dosage: 5 MG, QD
     Route: 065

REACTIONS (1)
  - Abdominal abscess [Recovered/Resolved with Sequelae]

NARRATIVE: CASE EVENT DATE: 20190528
